FAERS Safety Report 21765496 (Version 1)
Quarter: 2022Q4

REPORT INFORMATION
  Report Type: Spontaneous
  Country: US (occurrence: None)
  Receive Date: 20221221
  Receipt Date: 20221221
  Transmission Date: 20230113
  Serious: No
  Sender: FDA-Public Use
  Company Number: None

PATIENT
  Age: 64 Year
  Sex: Female

DRUGS (1)
  1. TADALAFIL [Suspect]
     Active Substance: TADALAFIL
     Indication: Pulmonary hypertension
     Dosage: 40 MG ONCE DAILY ORAL
     Route: 048
     Dates: start: 202211

REACTIONS (4)
  - Chest pain [None]
  - Pneumonia [None]
  - Headache [None]
  - Epistaxis [None]

NARRATIVE: CASE EVENT DATE: 20221211
